FAERS Safety Report 4858972-7 (Version None)
Quarter: 2005Q4

REPORT INFORMATION
  Report Type: 
  Country: None (occurrence: None)
  Receive Date: 20051215
  Receipt Date: 20051207
  Transmission Date: 20060501
  Serious: Yes (Other)
  Sender: FDA-Public Use
  Company Number: 2005-02-0886

PATIENT
  Age: 38 Year
  Sex: Male
  Weight: 78 kg

DRUGS (9)
  1. TEMODAL [Suspect]
     Indication: GLIOBLASTOMA
     Dosage: 200-300 * ORAL
     Route: 048
     Dates: start: 20040712, end: 20040717
  2. TEMODAL [Suspect]
     Indication: GLIOBLASTOMA
     Dosage: 200-300 * ORAL
     Route: 048
     Dates: start: 20040809, end: 20040814
  3. TEMODAL [Suspect]
     Indication: GLIOBLASTOMA
     Dosage: 200-300 * ORAL
     Route: 048
     Dates: start: 20040914, end: 20040919
  4. TEMODAL [Suspect]
     Indication: GLIOBLASTOMA
     Dosage: 200-300 * ORAL
     Route: 048
     Dates: start: 20041023, end: 20041028
  5. TEMODAL [Suspect]
     Indication: GLIOBLASTOMA
     Dosage: 200-300 * ORAL
     Route: 048
     Dates: start: 20041203, end: 20041207
  6. TEMODAL [Suspect]
     Indication: GLIOBLASTOMA
     Dosage: 200-300 * ORAL
     Route: 048
     Dates: start: 20041231, end: 20050104
  7. TEMODAL [Suspect]
     Indication: GLIOBLASTOMA
     Dosage: 200-300 * ORAL
     Route: 048
     Dates: start: 20050216, end: 20050220
  8. TEMODAL [Suspect]
     Indication: GLIOBLASTOMA
     Dosage: 200-300 * ORAL
     Route: 048
     Dates: start: 20050318, end: 20050323
  9. TEMODAL [Suspect]
     Indication: GLIOBLASTOMA
     Dosage: 200-300 * ORAL
     Route: 048
     Dates: start: 20040712

REACTIONS (1)
  - BLADDER CANCER STAGE II [None]
